FAERS Safety Report 12294744 (Version 1)
Quarter: 2016Q2

REPORT INFORMATION
  Report Type: Report from Study
  Country: BR (occurrence: BR)
  Receive Date: 20160422
  Receipt Date: 20160422
  Transmission Date: 20160815
  Serious: Yes (Other)
  Sender: FDA-Public Use
  Company Number: PHHY2016BR054000

PATIENT
  Sex: Female
  Weight: 68 kg

DRUGS (1)
  1. ACLASTA [Suspect]
     Active Substance: ZOLEDRONIC ACID
     Indication: OSTEOPOROSIS
     Dosage: 5 MG, Q12MO (1 APPLICATION PER YEAR)
     Route: 042
     Dates: start: 20150416

REACTIONS (4)
  - Vein rupture [Unknown]
  - Inflammation [Unknown]
  - Varicose vein [Unknown]
  - Fear [Unknown]
